FAERS Safety Report 24246045 (Version 1)
Quarter: 2024Q3

REPORT INFORMATION
  Report Type: Spontaneous
  Country: GB (occurrence: GB)
  Receive Date: 20240824
  Receipt Date: 20240824
  Transmission Date: 20241017
  Serious: Yes (Death, Other)
  Sender: ACCORD
  Company Number: None

PATIENT
  Age: 80 Year

DRUGS (9)
  1. SERTRALINE [Suspect]
     Active Substance: SERTRALINE HYDROCHLORIDE
     Indication: Product used for unknown indication
     Dosage: 50 MG TABLETS ONE TO BE TAKEN EACH DAY IN THE MORNING
  2. EDOXABAN [Suspect]
     Active Substance: EDOXABAN
     Indication: Product used for unknown indication
     Dosage: 60 MG TABLETS ONE TO BE TAKEN EACH DAY IN THE MORNING
  3. ACETAMINOPHEN [Concomitant]
     Active Substance: ACETAMINOPHEN
     Dosage: 500 MG TABLETS TWO TO BE TAKEN EVERY 4 - 6 HOURS UP TO FOUR TIMES A DAY
  4. GLICLAZIDE [Concomitant]
     Active Substance: GLICLAZIDE
     Dosage: 40 MG TABLETS ONE TO BE TAKEN DAILY WITH BREAKFAST-AKL / NBM
  5. ATORVASTATIN [Concomitant]
     Active Substance: ATORVASTATIN
     Dosage: 80 MG TABLETS TAKE ONE DAILY - PRESCRIBED ON ON TTO DEC 2023
  6. METFORMIN [Concomitant]
     Active Substance: METFORMIN HYDROCHLORIDE
     Dosage: 1 G MODIFIED - RELEASE TABLETS ONE TO BE TAKEN TWICE A DAY MORNING AND?TEATIME- AKI/NBM
  7. NICORANDIL [Concomitant]
     Active Substance: NICORANDIL
     Dosage: 20 MG TABLETS TAKE ONE TWICE DAILY-GIB
  8. BISOPROLOL [Concomitant]
     Active Substance: BISOPROLOL\BISOPROLOL FUMARATE
     Dosage: 1.25 MG TABLETS 1 TABLET ONCE A DAY - PRESCRIBED OM ON TTO DEC?202
  9. ALLOPURINOL [Concomitant]
     Active Substance: ALLOPURINOL
     Dosage: 100 MG TABLETS ONE TO BE TAKEN EACH DAY

REACTIONS (1)
  - Upper gastrointestinal haemorrhage [Fatal]
